FAERS Safety Report 23522335 (Version 2)
Quarter: 2024Q1

REPORT INFORMATION
  Report Type: Spontaneous
  Country: BR (occurrence: BR)
  Receive Date: 20240214
  Receipt Date: 20240220
  Transmission Date: 20240410
  Serious: No
  Sender: FDA-Public Use
  Company Number: BR-Zuellig Korea-ATNAHS20240200408

PATIENT
  Age: 50 Year
  Sex: Female
  Weight: 74 kg

DRUGS (8)
  1. DIAZEPAM [Suspect]
     Active Substance: DIAZEPAM
     Indication: Mixed anxiety and depressive disorder
  2. ACTEMRA [Suspect]
     Active Substance: TOCILIZUMAB
     Indication: Rheumatoid arthritis
     Dates: start: 20191001, end: 20231114
  3. CALCITRIOL [Concomitant]
     Active Substance: CALCITRIOL
     Indication: Hypoparathyroidism
  4. Atenolol and Hydrochlorothiazide [Concomitant]
     Indication: Hypertension
  5. QUETIAPINE [Concomitant]
     Active Substance: QUETIAPINE
     Indication: Depression
  6. METHOTREXATE [Concomitant]
     Active Substance: METHOTREXATE
     Indication: Rheumatoid arthritis
  7. LOSARTAN [Concomitant]
     Active Substance: LOSARTAN
     Indication: Hypertension
  8. LEVOTHYROXINE [Concomitant]
     Active Substance: LEVOTHYROXINE\LEVOTHYROXINE SODIUM
     Indication: Hypoparathyroidism

REACTIONS (4)
  - Heart rate abnormal [Not Recovered/Not Resolved]
  - Back pain [Not Recovered/Not Resolved]
  - Back pain [Not Recovered/Not Resolved]
  - Tremor [Not Recovered/Not Resolved]

NARRATIVE: CASE EVENT DATE: 20230101
